FAERS Safety Report 5076345-1 (Version None)
Quarter: 2006Q3

REPORT INFORMATION
  Report Type: 
  Country: None (occurrence: None)
  Receive Date: 20060807
  Receipt Date: 20060726
  Transmission Date: 20061208
  Serious: Yes (Other)
  Sender: FDA-Public Use
  Company Number: HQWYE390126JUL06

PATIENT
  Age: 56 Year
  Sex: Male

DRUGS (5)
  1. PANTOLOC               (PANTOPRAZOLE) [Suspect]
     Dosage: 40 MG 1X PER 1 DAY
  2. LIPITOR [Concomitant]
  3. AVANDIA [Concomitant]
  4. NORVASC [Concomitant]
  5. ALTACE [Concomitant]

REACTIONS (3)
  - ALANINE AMINOTRANSFERASE INCREASED [None]
  - ASPARTATE AMINOTRANSFERASE INCREASED [None]
  - BLOOD LACTATE DEHYDROGENASE INCREASED [None]
